FAERS Safety Report 21531821 (Version 2)
Quarter: 2022Q4

REPORT INFORMATION
  Report Type: Spontaneous
  Country: ES (occurrence: ES)
  Receive Date: 20221101
  Receipt Date: 20221214
  Transmission Date: 20230113
  Serious: Yes (Hospitalization)
  Sender: FDA-Public Use
  Company Number: ES-TEVA-2022-ES-2821840

PATIENT
  Age: 61 Year
  Sex: Male

DRUGS (2)
  1. TAMSULOSIN [Suspect]
     Active Substance: TAMSULOSIN
     Indication: Benign prostatic hyperplasia
     Route: 065
  2. PHENYLEPHRINE [Suspect]
     Active Substance: PHENYLEPHRINE HYDROCHLORIDE
     Indication: Priapism
     Dosage: INSTILLATION OF 5 CC OF A SOLUTION OF PHENYLEPHRINE 1 MG IN 10 CC OF SALINE SERUM
     Route: 017

REACTIONS (3)
  - Priapism [Recovered/Resolved]
  - Erectile dysfunction [Recovered/Resolved]
  - Drug ineffective [Unknown]
